FAERS Safety Report 21080318 (Version 2)
Quarter: 2022Q3

REPORT INFORMATION
  Report Type: Report from Study
  Country: US (occurrence: US)
  Receive Date: 20220714
  Receipt Date: 20220728
  Transmission Date: 20221026
  Serious: Yes (Hospitalization)
  Sender: FDA-Public Use
  Company Number: US-INSMED, INC.-2021-10397-US

PATIENT
  Sex: Female

DRUGS (2)
  1. ARIKAYCE [Suspect]
     Active Substance: AMIKACIN
     Indication: Cystic fibrosis lung
     Dosage: 590 MILLIGRAM ON MONDAY, WEDNESDAY AND FRIDAY
     Route: 055
     Dates: start: 20220307, end: 2022
  2. ARIKAYCE [Suspect]
     Active Substance: AMIKACIN
     Dosage: 590 MILLIGRAM, EVERY MONDAY, WEDNESDAY, AND FRIDAY
     Route: 055
     Dates: start: 202207

REACTIONS (6)
  - Cystic fibrosis [Unknown]
  - Intentional dose omission [Unknown]
  - Drug dose omission by device [Unknown]
  - Product dose omission issue [Unknown]
  - Therapy interrupted [Unknown]
  - Off label use [Unknown]

NARRATIVE: CASE EVENT DATE: 20220101
